FAERS Safety Report 4543897-7 (Version None)
Quarter: 2005Q1

REPORT INFORMATION
  Report Type: 
  Country: None (occurrence: None)
  Receive Date: 20050103
  Receipt Date: 20040517
  Transmission Date: 20050727
  Serious: Yes (Other)
  Sender: FDA-Public Use
  Company Number: GXKR2004FR00596

PATIENT
  Age: 15 Year
  Sex: Male

DRUGS (1)
  1. CAPTOPRIL [Suspect]
     Indication: AORTIC VALVE INCOMPETENCE
     Dosage: 25 MG DAILY

REACTIONS (4)
  - BALANCE DISORDER [None]
  - CHOREA [None]
  - DYSARTHRIA [None]
  - MOVEMENT DISORDER [None]
